FAERS Safety Report 17197352 (Version 11)
Quarter: 2021Q2

REPORT INFORMATION
  Report Type: Spontaneous
  Country: US (occurrence: US)
  Receive Date: 20191224
  Receipt Date: 20210601
  Transmission Date: 20210716
  Serious: Yes (Hospitalization, Other)
  Sender: FDA-Public Use
  Company Number: US-MALLINCKRODT-T201906567

PATIENT
  Age: 76 Year
  Sex: Female
  Weight: 68 kg

DRUGS (6)
  1. COVID?19 VACCINE NOS. [Concomitant]
     Active Substance: COVID-19 VACCINE NOS
     Indication: PRODUCT USED FOR UNKNOWN INDICATION
     Dosage: UNK
     Route: 065
     Dates: start: 20210127, end: 20210127
  2. H.P. ACTHAR [Suspect]
     Active Substance: CORTICOTROPIN
     Indication: POLYMYOSITIS
     Dosage: 80 UNITS 1 MILLILITER, TWICE A WEEK
     Route: 058
     Dates: start: 20190827
  3. H.P. ACTHAR [Suspect]
     Active Substance: CORTICOTROPIN
     Dosage: 1 MILLILITER (80 UNITS), TWICE A WEEK
     Route: 058
     Dates: start: 202008, end: 2020
  4. H.P. ACTHAR [Suspect]
     Active Substance: CORTICOTROPIN
     Indication: DERMATOMYOSITIS
     Dosage: 1 MILLILITER, TWICE A WEEK (80 UNITS)
     Route: 058
     Dates: start: 2020, end: 2020
  5. IRON [Suspect]
     Active Substance: IRON
     Indication: HAEMOGLOBIN DECREASED
     Dosage: UNK
     Route: 065
     Dates: start: 202005
  6. H.P. ACTHAR [Suspect]
     Active Substance: CORTICOTROPIN
     Dosage: UNK
     Route: 065
     Dates: start: 2021

REACTIONS (25)
  - Stent placement [Unknown]
  - Cataract operation [Unknown]
  - Kidney infection [Not Recovered/Not Resolved]
  - Illness [Unknown]
  - Sensitivity to weather change [Unknown]
  - Myalgia [Unknown]
  - Nausea [Unknown]
  - Fatigue [Unknown]
  - Abdominal discomfort [Unknown]
  - Periorbital swelling [Unknown]
  - Corneal oedema [Not Recovered/Not Resolved]
  - Impaired healing [Unknown]
  - Cataract [Unknown]
  - Glaucoma [Unknown]
  - Blood glucose increased [Not Recovered/Not Resolved]
  - Chest pain [Unknown]
  - Pain [Not Recovered/Not Resolved]
  - Eye pain [Unknown]
  - Arthritis [Unknown]
  - Coronary artery occlusion [Unknown]
  - Sluggishness [Unknown]
  - Weight decreased [Unknown]
  - Therapeutic response shortened [Not Recovered/Not Resolved]
  - Haemoglobin decreased [Unknown]
  - Arthralgia [Not Recovered/Not Resolved]

NARRATIVE: CASE EVENT DATE: 2019
